FAERS Safety Report 7375438-3 (Version None)
Quarter: 2011Q1

REPORT INFORMATION
  Report Type: 
  Country: None (occurrence: None)
  Receive Date: 20110325
  Receipt Date: 20110323
  Transmission Date: 20110831
  Serious: Yes (Death, Hospitalization)
  Sender: FDA-Public Use
  Company Number: ES-ROXANE LABORATORIES, INC.-2011-RO-00395RO

PATIENT
  Age: 54 Year
  Sex: Female

DRUGS (5)
  1. SINTROM [Suspect]
     Indication: MITRAL VALVE REPLACEMENT
  2. PARICALCITOL [Suspect]
     Indication: HYPERPARATHYROIDISM
  3. CALCITRIOL [Suspect]
     Indication: HYPERPARATHYROIDISM
     Dates: end: 20050101
  4. CALCIUM CARBONATE [Suspect]
     Indication: HYPOCALCAEMIA
  5. CINACALCET [Suspect]
     Indication: HYPERPARATHYROIDISM
     Dates: start: 20050101

REACTIONS (2)
  - DEATH [None]
  - CALCIPHYLAXIS [None]
